FAERS Safety Report 8271479-2 (Version None)
Quarter: 2012Q2

REPORT INFORMATION
  Report Type: 
  Country: None (occurrence: None)
  Receive Date: 20120410
  Receipt Date: 20120404
  Transmission Date: 20120825
  Serious: Yes (Hospitalization)
  Sender: FDA-Public Use
  Company Number: US-AMGEN-USACT2012006409

PATIENT
  Age: 70 Year
  Sex: Male

DRUGS (12)
  1. COUMADIN [Concomitant]
     Dosage: 6 MG, QD
     Dates: start: 20080201
  2. XGEVA [Suspect]
     Indication: BONE GIANT CELL TUMOUR
     Dosage: 120 MG, Q4WK
     Route: 058
     Dates: start: 20110913
  3. SERTRALINE HYDROCHLORIDE [Concomitant]
     Dosage: 50 MG, QD
     Dates: start: 19750401
  4. GLYBURIDE [Concomitant]
     Dosage: 5 MG, QD
     Dates: start: 19900501
  5. ATENOLOL [Concomitant]
     Dosage: 25 MG, QD
     Dates: start: 19790401
  6. LOVENOX [Concomitant]
     Dosage: UNK UNK, BID
     Dates: start: 20111225
  7. ASPIRIN [Concomitant]
     Dosage: 81 MG, QD
     Dates: start: 20080201
  8. LISINOPRIL [Concomitant]
     Dosage: 40 MG, QD
     Dates: start: 19810901
  9. HYDROCHLOROTHIAZIDE [Concomitant]
     Dosage: 25 MG, QD
     Dates: start: 19970301
  10. PRILOSEC [Concomitant]
     Dosage: UNK
     Dates: start: 19960501
  11. AZITHROMYCIN [Concomitant]
     Dosage: 250 MG, QD
     Dates: start: 20111206
  12. SIMVASTATIN [Concomitant]
     Dosage: 80 MG, QD
     Dates: start: 19820201

REACTIONS (1)
  - BACTERAEMIA [None]
